FAERS Safety Report 19813740 (Version 1)
Quarter: 2021Q3

REPORT INFORMATION
  Report Type: Other
  Country: CN (occurrence: CN)
  Receive Date: 20210909
  Receipt Date: 20210909
  Transmission Date: 20211014
  Serious: Yes (Other)
  Sender: FDA-Public Use
  Company Number: CN-ROCHE-2905137

PATIENT

DRUGS (9)
  1. ATEZOLIZUMAB. [Suspect]
     Active Substance: ATEZOLIZUMAB
     Indication: NON-SMALL CELL LUNG CANCER
     Route: 065
  2. GEMCITABINE. [Suspect]
     Active Substance: GEMCITABINE
     Indication: NON-SMALL CELL LUNG CANCER
     Route: 065
  3. PEMBROLIZUMAB. [Suspect]
     Active Substance: PEMBROLIZUMAB
     Indication: NON-SMALL CELL LUNG CANCER
     Route: 065
  4. TISLELIZUMAB [Suspect]
     Active Substance: TISLELIZUMAB
     Indication: NON-SMALL CELL LUNG CANCER
     Route: 065
  5. SITRAVATINIB. [Suspect]
     Active Substance: SITRAVATINIB
     Indication: NON-SMALL CELL LUNG CANCER
     Route: 065
  6. BEVACIZUMAB. [Suspect]
     Active Substance: BEVACIZUMAB
     Indication: NON-SMALL CELL LUNG CANCER
     Route: 065
  7. NIVOLUMAB [Suspect]
     Active Substance: NIVOLUMAB
     Indication: NON-SMALL CELL LUNG CANCER
     Route: 065
  8. PEMETREXED. [Suspect]
     Active Substance: PEMETREXED
     Indication: NON-SMALL CELL LUNG CANCER
     Route: 065
  9. APATINIB MESYLATE [Suspect]
     Active Substance: APATINIB
     Indication: NON-SMALL CELL LUNG CANCER
     Route: 065

REACTIONS (28)
  - Rash [Unknown]
  - Cytokine increased [Unknown]
  - Thrombocytopenia [Unknown]
  - Anaemia [Unknown]
  - Neutropenia [Unknown]
  - Hyponatraemia [Unknown]
  - Vomiting [Unknown]
  - Palmar-plantar erythrodysaesthesia syndrome [Unknown]
  - Pneumonitis [Unknown]
  - Fatigue [Unknown]
  - Transaminases increased [Unknown]
  - Pyrexia [Unknown]
  - Bronchial fistula [Unknown]
  - Hyperthyroidism [Unknown]
  - Leukopenia [Unknown]
  - Hypokalaemia [Unknown]
  - Blood bilirubin increased [Unknown]
  - Pain [Unknown]
  - Nausea [Unknown]
  - Decreased appetite [Unknown]
  - Proteinuria [Unknown]
  - Thyroid disorder [Unknown]
  - Constipation [Unknown]
  - Hypothyroidism [Unknown]
  - Diarrhoea [Unknown]
  - Hypertension [Unknown]
  - Blood creatinine increased [Unknown]
  - Myalgia [Unknown]
